FAERS Safety Report 24279210 (Version 5)
Quarter: 2024Q3

REPORT INFORMATION
  Report Type: Spontaneous
  Country: US (occurrence: US)
  Receive Date: 20240903
  Receipt Date: 20240910
  Transmission Date: 20241017
  Serious: Yes (Other)
  Sender: PFIZER
  Company Number: US-PFIZER INC-PV202400114825

PATIENT
  Age: 66 Year
  Sex: Female

DRUGS (1)
  1. PRISTIQ EXTENDED-RELEASE [Suspect]
     Active Substance: DESVENLAFAXINE SUCCINATE
     Dosage: ONLY ON 25 MILLIGRAMS
     Dates: start: 2021

REACTIONS (5)
  - Drug dependence [Not Recovered/Not Resolved]
  - Mental impairment [Unknown]
  - Suicidal ideation [Unknown]
  - Feeling abnormal [Unknown]
  - Confusional state [Unknown]
